FAERS Safety Report 19013318 (Version 2)
Quarter: 2021Q2

REPORT INFORMATION
  Report Type: Report from Study
  Country: CA (occurrence: CA)
  Receive Date: 20210315
  Receipt Date: 20210628
  Transmission Date: 20210717
  Serious: Yes (Other)
  Sender: FDA-Public Use
  Company Number: CA-JNJFOC-20210319251

PATIENT
  Age: 8 Decade
  Sex: Female

DRUGS (2)
  1. REMICADE [Suspect]
     Active Substance: INFLIXIMAB
     Indication: RHEUMATOID ARTHRITIS
     Dosage: ON 06/MAR/2019 THE PATIENT RECEIVED REMICADE.
     Route: 042
     Dates: start: 20190123, end: 20200923
  2. REMICADE [Suspect]
     Active Substance: INFLIXIMAB
     Dosage: UNAPPROVED DOSE REGIMEN
     Route: 042

REACTIONS (3)
  - Off label use [Unknown]
  - Squamous cell carcinoma [Unknown]
  - Product use issue [Unknown]
